FAERS Safety Report 4461814-5 (Version None)
Quarter: 2004Q3

REPORT INFORMATION
  Report Type: 
  Country: None (occurrence: None)
  Receive Date: 20040929
  Receipt Date: 20031023
  Transmission Date: 20050211
  Serious: No
  Sender: FDA-Public Use
  Company Number: US-GLAXOSMITHKLINE-A0431394A

PATIENT
  Sex: Male

DRUGS (6)
  1. SEREVENT [Suspect]
     Dosage: 1PUFF PER DAY
     Route: 055
     Dates: start: 20030501
  2. THYROID TAB [Concomitant]
  3. HEART MEDICATION [Concomitant]
  4. BLOOD PRESSURE MEDICATION [Concomitant]
  5. COMBIVENT [Concomitant]
  6. ASPIRIN [Concomitant]

REACTIONS (2)
  - ASTHMA [None]
  - HEADACHE [None]
